FAERS Safety Report 20218624 (Version 1)
Quarter: 2021Q4

REPORT INFORMATION
  Report Type: Spontaneous
  Country: US (occurrence: US)
  Receive Date: 20211222
  Receipt Date: 20211222
  Transmission Date: 20220303
  Serious: Yes (Hospitalization)
  Sender: FDA-Public Use
  Company Number: US-JUBILANT CADISTA PHARMACEUTICALS-2021JUB00441

PATIENT
  Age: 80 Year
  Sex: Male

DRUGS (2)
  1. OLANZAPINE [Suspect]
     Active Substance: OLANZAPINE
     Indication: Insomnia
     Dosage: 5 MG, ONCE AT 2030 HOURS
     Route: 048
  2. UNSPECIFIED INGREDIENT [Concomitant]
     Active Substance: UNSPECIFIED INGREDIENT
     Route: 042

REACTIONS (5)
  - Hyperventilation [Recovered/Resolved]
  - Mental disorder [Recovered/Resolved]
  - Tachycardia [Recovered/Resolved]
  - Respiratory alkalosis [Recovered/Resolved]
  - Hypotension [Recovered/Resolved]
